FAERS Safety Report 8178642-X (Version None)
Quarter: 2012Q1

REPORT INFORMATION
  Report Type: 
  Country: None (occurrence: None)
  Receive Date: 20120301
  Receipt Date: 20120220
  Transmission Date: 20120608
  Serious: Yes (Death, Hospitalization)
  Sender: FDA-Public Use
  Company Number: FR-MERCK-1109FRA00107

PATIENT
  Age: 53 Year
  Sex: Male
  Weight: 117 kg

DRUGS (13)
  1. METFORMIN [Concomitant]
     Indication: TYPE 2 DIABETES MELLITUS
     Route: 048
     Dates: start: 20100209, end: 20110504
  2. JANUMET [Concomitant]
     Indication: TYPE 2 DIABETES MELLITUS
     Route: 048
     Dates: start: 20110505, end: 20110630
  3. ENALAPRIL MALEATE AND LERCANIDIPINE HYDROCHLORIDE [Concomitant]
     Indication: CARDIOMYOPATHY
     Route: 065
     Dates: start: 20100326
  4. ASPIRIN LYSINE [Concomitant]
     Indication: CARDIOMYOPATHY
     Route: 065
     Dates: start: 20100326
  5. GLICLAZIDE [Concomitant]
     Indication: TYPE 2 DIABETES MELLITUS
     Route: 048
     Dates: start: 20100507, end: 20110504
  6. GLICLAZIDE [Concomitant]
     Route: 048
     Dates: start: 20110505, end: 20110630
  7. METFORMIN [Concomitant]
     Route: 048
     Dates: start: 20080201, end: 20100208
  8. BISOPROLOL FUMARATE AND HYDROCHLOROTHIAZIDE [Concomitant]
     Indication: CARDIOMYOPATHY
     Route: 065
     Dates: start: 20100326
  9. IVABRADINE HYDROCHLORIDE [Concomitant]
     Indication: CARDIOMYOPATHY
     Route: 065
     Dates: start: 20100326
  10. ROSUVASTATIN CALCIUM [Concomitant]
     Indication: CARDIOMYOPATHY
     Route: 065
     Dates: start: 20091112
  11. METFORMIN [Concomitant]
     Route: 048
     Dates: start: 20110505, end: 20110630
  12. JANUVIA [Suspect]
     Indication: TYPE 2 DIABETES MELLITUS
     Route: 048
     Dates: start: 20100209, end: 20110504
  13. JANUVIA [Suspect]
     Route: 048
     Dates: start: 20110701

REACTIONS (3)
  - METASTASES TO BONE [None]
  - LUNG CANCER METASTATIC [None]
  - LOWER LIMB FRACTURE [None]
